FAERS Safety Report 7987908-5 (Version None)
Quarter: 2011Q4

REPORT INFORMATION
  Report Type: 
  Country: None (occurrence: None)
  Receive Date: 20111216
  Receipt Date: 20101122
  Transmission Date: 20120403
  Serious: No
  Sender: FDA-Public Use
  Company Number: US-BRISTOL-MYERS SQUIBB COMPANY-15385974

PATIENT
  Sex: Female

DRUGS (3)
  1. ABILIFY [Suspect]
     Indication: DEPRESSION
     Dosage: INTERRUPTED IN THE PAST
     Route: 048
     Dates: start: 20080101
  2. ABILIFY [Suspect]
     Indication: SCHIZOID PERSONALITY DISORDER
     Dosage: INTERRUPTED IN THE PAST
     Route: 048
     Dates: start: 20080101
  3. CYMBALTA [Suspect]
     Indication: DEPRESSION

REACTIONS (1)
  - ORAL DISCOMFORT [None]
